FAERS Safety Report 8439329-9 (Version None)
Quarter: 2012Q2

REPORT INFORMATION
  Report Type: 
  Country: None (occurrence: None)
  Receive Date: 20120615
  Receipt Date: 20120612
  Transmission Date: 20120825
  Serious: Yes (Other)
  Sender: FDA-Public Use
  Company Number: US-PFIZER INC-2012141770

PATIENT
  Sex: Female
  Weight: 53.515 kg

DRUGS (2)
  1. PREMARIN [Suspect]
     Indication: VULVOVAGINAL DISCOMFORT
  2. PREMARIN [Suspect]
     Indication: VULVOVAGINAL BURNING SENSATION
     Dosage: 0.625 MG, 2X/WEEK
     Route: 067

REACTIONS (1)
  - BLOOD CREATININE INCREASED [None]
